FAERS Safety Report 6118800-9 (Version None)
Quarter: 2009Q1

REPORT INFORMATION
  Report Type: 
  Country: None (occurrence: None)
  Receive Date: 20090316
  Receipt Date: 20090304
  Transmission Date: 20090719
  Serious: Yes (Other)
  Sender: FDA-Public Use
  Company Number: PHHY2009BR07909

PATIENT
  Sex: Male

DRUGS (5)
  1. FORASEQ [Suspect]
     Indication: CHRONIC OBSTRUCTIVE PULMONARY DISEASE
     Dosage: 2 TO 3 TIMES PER DAY
  2. FORASEQ [Suspect]
     Indication: EMPHYSEMA
  3. OXYGEN [Concomitant]
  4. BUDESONIDE [Concomitant]
     Dosage: UNK
     Dates: start: 20090301
  5. AMINOPHYLLINE [Concomitant]
     Indication: CHRONIC OBSTRUCTIVE PULMONARY DISEASE
     Dosage: 2 -3 DF /DAY
     Route: 048

REACTIONS (5)
  - ABDOMINAL DISTENSION [None]
  - DYSPNOEA [None]
  - EATING DISORDER [None]
  - NAUSEA [None]
  - VOMITING [None]
